FAERS Safety Report 5825562-9 (Version None)
Quarter: 2008Q3

REPORT INFORMATION
  Report Type: 
  Country: None (occurrence: None)
  Receive Date: 20080725
  Receipt Date: 20080725
  Transmission Date: 20090109
  Serious: Yes (Hospitalization)
  Sender: FDA-Public Use
  Company Number: None

PATIENT
  Sex: Male
  Weight: 163 kg

DRUGS (1)
  1. CISPLATIN [Suspect]
     Dosage: 200 MG
     Dates: end: 20080605

REACTIONS (1)
  - SWELLING FACE [None]
